FAERS Safety Report 18943861 (Version 1)
Quarter: 2021Q1

REPORT INFORMATION
  Report Type: Spontaneous
  Country: US (occurrence: US)
  Receive Date: 20210225
  Receipt Date: 20210225
  Transmission Date: 20210420
  Serious: No
  Sender: FDA-Public Use
  Company Number: None

PATIENT
  Age: 58 Year
  Sex: Female
  Weight: 68.4 kg

DRUGS (1)
  1. HYDROCODONE/ACETAMINOPHEN 10MG?325MG [Suspect]
     Active Substance: ACETAMINOPHEN\HYDROCODONE BITARTRATE
     Indication: BACK INJURY
     Dosage: ?          QUANTITY:1 TABLET(S);?
     Route: 048
     Dates: start: 20210223, end: 20210225

REACTIONS (11)
  - Wrong strength [None]
  - Anxiety [None]
  - Withdrawal syndrome [None]
  - Vertigo [None]
  - Product residue present [None]
  - Headache [None]
  - Product quality issue [None]
  - Hyperhidrosis [None]
  - Product physical issue [None]
  - Nausea [None]
  - Product complaint [None]

NARRATIVE: CASE EVENT DATE: 20210223
